FAERS Safety Report 9859660 (Version 1)
Quarter: 2014Q1

REPORT INFORMATION
  Report Type: Spontaneous
  Country: US (occurrence: US)
  Receive Date: 20140131
  Receipt Date: 20140131
  Transmission Date: 20141002
  Serious: Yes (Hospitalization)
  Sender: FDA-Public Use
  Company Number: US-GLAXOSMITHKLINE-A1057865A

PATIENT
  Age: 58 Year
  Sex: Female

DRUGS (2)
  1. VENTOLIN [Suspect]
     Indication: ASTHMA
     Dosage: 1PUFF PER DAY
     Route: 055
  2. NO CONCURRENT MEDICATION [Concomitant]

REACTIONS (11)
  - Impaired gastric emptying [Unknown]
  - Surgery [Unknown]
  - Gastrointestinal disorder [Unknown]
  - Hair texture abnormal [Unknown]
  - Alopecia [Unknown]
  - Stress [Unknown]
  - Respiratory tract congestion [Unknown]
  - Nasal congestion [Unknown]
  - Paranasal sinus hypersecretion [Unknown]
  - Dyspepsia [Unknown]
  - Gastric disorder [Unknown]
